FAERS Safety Report 8189665-9 (Version None)
Quarter: 2012Q1

REPORT INFORMATION
  Report Type: 
  Country: None (occurrence: None)
  Receive Date: 20120221
  Receipt Date: 20120117
  Transmission Date: 20120608
  Serious: No
  Sender: FDA-Public Use
  Company Number: 049807

PATIENT
  Age: 4 Year

DRUGS (1)
  1. LACOSAMIDE [Suspect]
     Dosage: (150 MG BID, 150 MG TWICE IN A DAY IN LIQUID FORM (STRENGTH: 10MG/ML))

REACTIONS (2)
  - DIARRHOEA [None]
  - WRONG TECHNIQUE IN DRUG USAGE PROCESS [None]
